FAERS Safety Report 17633521 (Version 15)
Quarter: 2024Q1

REPORT INFORMATION
  Report Type: Report from Study
  Country: CA (occurrence: CA)
  Receive Date: 20200406
  Receipt Date: 20240305
  Transmission Date: 20240410
  Serious: Yes (Other)
  Sender: FDA-Public Use
  Company Number: PHHY2016CA113144

PATIENT
  Sex: Female

DRUGS (5)
  1. SANDOSTATIN LAR DEPOT [Suspect]
     Active Substance: OCTREOTIDE ACETATE
     Indication: Carcinoid syndrome
     Dosage: 20 MG, QMO (EVERY 4 WEEKS)
     Route: 030
     Dates: start: 20160718
  2. SANDOSTATIN LAR DEPOT [Suspect]
     Active Substance: OCTREOTIDE ACETATE
     Indication: Neuroendocrine tumour of the lung
     Dosage: 20 MG, Q3W
     Route: 030
     Dates: start: 20160718
  3. SANDOSTATIN LAR DEPOT [Suspect]
     Active Substance: OCTREOTIDE ACETATE
     Dosage: 20 MG, Q3W
     Route: 030
     Dates: start: 20240213
  4. PREDNISONE [Concomitant]
     Active Substance: PREDNISONE
     Indication: Sjogren^s syndrome
     Dosage: UNK
     Route: 048
  5. SYNTHROID [Concomitant]
     Active Substance: LEVOTHYROXINE SODIUM
     Indication: Product used for unknown indication
     Dosage: 1 DOSAGE FORM, QD
     Route: 065

REACTIONS (17)
  - Thrombosis [Recovered/Resolved]
  - Syncope [Unknown]
  - Neuroendocrine tumour [Not Recovered/Not Resolved]
  - Malignant neoplasm progression [Not Recovered/Not Resolved]
  - Hypersomnia [Unknown]
  - Dermatitis contact [Unknown]
  - Corneal erosion [Unknown]
  - Flushing [Unknown]
  - Blood pressure increased [Unknown]
  - Fatigue [Not Recovered/Not Resolved]
  - Malaise [Unknown]
  - Cough [Unknown]
  - Rash [Unknown]
  - Contrast media allergy [Unknown]
  - Injection site mass [Unknown]
  - Needle issue [Unknown]
  - Inappropriate schedule of product administration [Unknown]

NARRATIVE: CASE EVENT DATE: 20160701
